FAERS Safety Report 6100408-2 (Version None)
Quarter: 2009Q1

REPORT INFORMATION
  Report Type: 
  Country: None (occurrence: None)
  Receive Date: 20090227
  Receipt Date: 20090227
  Transmission Date: 20090719
  Serious: Yes (Other)
  Sender: FDA-Public Use
  Company Number: None

PATIENT
  Age: 57 Year
  Sex: Female
  Weight: 86.1834 kg

DRUGS (1)
  1. MUCINEX [Suspect]
     Indication: COUGH
     Dosage: ONE TABLET

REACTIONS (2)
  - MYALGIA [None]
  - URINARY INCONTINENCE [None]
